FAERS Safety Report 13451356 (Version 2)
Quarter: 2017Q2

REPORT INFORMATION
  Report Type: Other
  Country: JP (occurrence: JP)
  Receive Date: 20170418
  Receipt Date: 20170502
  Transmission Date: 20170830
  Serious: Yes (Death)
  Sender: FDA-Public Use
  Company Number: JP-ACTELION-A-CH2017-152490

PATIENT
  Weight: 1.41 kg

DRUGS (11)
  1. EPOPROSTENOL ACT [Suspect]
     Active Substance: EPOPROSTENOL
     Dosage: 30 NG/KG, PER MIN
     Route: 042
  2. DOBUTAMINE HYDROCHLORIDE. [Concomitant]
     Active Substance: DOBUTAMINE HYDROCHLORIDE
  3. AMPICILLIN [Concomitant]
     Active Substance: AMPICILLIN
  4. EPOPROSTENOL ACT [Suspect]
     Active Substance: EPOPROSTENOL
     Indication: PERSISTENT FOETAL CIRCULATION
     Dosage: UNK
     Route: 042
     Dates: start: 20160710
  5. NITRIC OXIDE. [Concomitant]
     Active Substance: NITRIC OXIDE
  6. MEROPENEM. [Concomitant]
     Active Substance: MEROPENEM
  7. GENTAMICIN SULFATE. [Concomitant]
     Active Substance: GENTAMICIN SULFATE
  8. EPOPROSTENOL ACT [Suspect]
     Active Substance: EPOPROSTENOL
     Dosage: 10 NG/KG, PER MIN
     Route: 042
     Dates: end: 20160711
  9. OXYGEN. [Concomitant]
     Active Substance: OXYGEN
     Dosage: 60 %, UNK
     Dates: start: 20160710, end: 20160711
  10. TEICOPLANIN [Concomitant]
     Active Substance: TEICOPLANIN
  11. DOPAMINE HYDROCHLORIDE. [Concomitant]
     Active Substance: DOPAMINE HYDROCHLORIDE

REACTIONS (6)
  - Intraventricular haemorrhage [Fatal]
  - Shock haemorrhagic [Fatal]
  - Condition aggravated [Fatal]
  - Pulmonary haemorrhage [Fatal]
  - Vasodilatation [Fatal]
  - Persistent foetal circulation [Fatal]

NARRATIVE: CASE EVENT DATE: 201607
